FAERS Safety Report 17127275 (Version 1)
Quarter: 2019Q4

REPORT INFORMATION
  Report Type: Spontaneous
  Country: US (occurrence: US)
  Receive Date: 20191114
  Receipt Date: 20191114
  Transmission Date: 20200122
  Serious: Yes (Hospitalization)
  Sender: FDA-Public Use
  Company Number: None

PATIENT
  Sex: Female

DRUGS (1)
  1. AVONEX [Suspect]
     Active Substance: INTERFERON BETA-1A
     Indication: MULTIPLE SCLEROSIS
     Dosage: ?          OTHER STRENGTH:300MCG/0.5M;?
     Route: 030
     Dates: start: 20180420

REACTIONS (14)
  - Toe amputation [None]
  - Hepatic enzyme increased [None]
  - Limb operation [None]
  - Gangrene [None]
  - Sepsis [None]
  - Colitis [None]
  - Limb injury [None]
  - Peripheral swelling [None]
  - Malaise [None]
  - Skin ulcer [None]
  - Pancreatitis [None]
  - Finger amputation [None]
  - Diabetes mellitus [None]
  - Jaundice [None]
